FAERS Safety Report 20001439 (Version 3)
Quarter: 2021Q4

REPORT INFORMATION
  Report Type: Report from Study
  Country: MX (occurrence: MX)
  Receive Date: 20211027
  Receipt Date: 20211216
  Transmission Date: 20220303
  Serious: Yes (Hospitalization, Other)
  Sender: FDA-Public Use
  Company Number: MX-NOVARTISPH-NVSC2021MX236621

PATIENT
  Age: 52 Year
  Sex: Male
  Weight: 50 kg

DRUGS (3)
  1. SANDOSTATIN [Suspect]
     Active Substance: OCTREOTIDE ACETATE
     Indication: Colostomy
     Dosage: 1 DF, QD
     Route: 030
     Dates: start: 202109, end: 202110
  2. SANDOSTATIN [Suspect]
     Active Substance: OCTREOTIDE ACETATE
     Indication: Rehabilitation therapy
     Dosage: 1 DF, QMO (1 DF OF 20 MG) (AMPOULE)
     Route: 030
     Dates: start: 20210924
  3. SANDOSTATIN [Suspect]
     Active Substance: OCTREOTIDE ACETATE
     Dosage: 1 DF (EVERY 3 DAYS)
     Route: 058
     Dates: start: 202110

REACTIONS (13)
  - Gallbladder disorder [Not Recovered/Not Resolved]
  - Malnutrition [Not Recovered/Not Resolved]
  - Liver injury [Not Recovered/Not Resolved]
  - White blood cell count decreased [Not Recovered/Not Resolved]
  - Anaemia [Not Recovered/Not Resolved]
  - Decreased immune responsiveness [Not Recovered/Not Resolved]
  - Stoma site haemorrhage [Not Recovered/Not Resolved]
  - Infection [Not Recovered/Not Resolved]
  - General physical health deterioration [Not Recovered/Not Resolved]
  - Weight decreased [Not Recovered/Not Resolved]
  - Product use in unapproved indication [Unknown]
  - Inappropriate schedule of product administration [Unknown]
  - Incorrect route of product administration [Unknown]

NARRATIVE: CASE EVENT DATE: 20210901
